FAERS Safety Report 6721926-X (Version None)
Quarter: 2010Q2

REPORT INFORMATION
  Report Type: 
  Country: None (occurrence: None)
  Receive Date: 20100512
  Receipt Date: 20100505
  Transmission Date: 20101027
  Serious: Yes (Death)
  Sender: FDA-Public Use
  Company Number: A0788062A

PATIENT
  Age: 87 Year
  Sex: Male

DRUGS (2)
  1. AVANDIA [Suspect]
     Indication: DIABETES MELLITUS
     Dosage: 4U TWICE PER DAY
     Route: 048
     Dates: start: 20011022, end: 20070704
  2. AVANDAMET [Suspect]
     Indication: DIABETES MELLITUS
     Dates: start: 20051101, end: 20060103

REACTIONS (2)
  - DEATH [None]
  - INJURY [None]
